FAERS Safety Report 4342298-4 (Version None)
Quarter: 2004Q2

REPORT INFORMATION
  Report Type: 
  Country: None (occurrence: None)
  Receive Date: 20040420
  Receipt Date: 20040420
  Transmission Date: 20050107
  Serious: Yes (Other)
  Sender: FDA-Public Use
  Company Number: None

PATIENT
  Sex: Female
  Weight: 84 kg

DRUGS (1)
  1. POLARAMINE [Suspect]
     Indication: MULTIPLE ALLERGIES
     Dosage: ONE WHEN NEEDL ORAL
     Route: 048
     Dates: start: 19960411, end: 19990910

REACTIONS (1)
  - DEPRESSION [None]
